FAERS Safety Report 10904152 (Version 1)
Quarter: 2015Q1

REPORT INFORMATION
  Report Type: Spontaneous
  Country: IN (occurrence: None)
  Receive Date: 20150306
  Receipt Date: 20150306
  Transmission Date: 20150721
  Serious: Yes (Hospitalization, Other)
  Sender: FDA-Public Use
  Company Number: INT_00701_2015

PATIENT
  Sex: Female

DRUGS (3)
  1. PACLITAXEL (PACLITAXEL) [Suspect]
     Active Substance: PACLITAXEL
     Indication: SQUAMOUS CELL CARCINOMA
     Dosage: FOR 4 WEEKS, 4 CYCLES
  2. RADIATION THERAPY [Suspect]
     Active Substance: RADIATION THERAPY
     Indication: SQUAMOUS CELL CARCINOMA
     Dosage: 50 GY WAS DELIVERED IN 25 FRACTIONS FO 5 DAYS/WEEK
  3. CISPLATIN (CISPLATIN) (HQ SPECIALTY) [Suspect]
     Active Substance: CISPLATIN
     Indication: SQUAMOUS CELL CARCINOMA
     Dosage: FOR 4 WEEKS, 4 CYCLES

REACTIONS (2)
  - Urinary tract infection [None]
  - Bacterial sepsis [None]
